FAERS Safety Report 5823746-7 (Version None)
Quarter: 2008Q3

REPORT INFORMATION
  Report Type: 
  Country: None (occurrence: None)
  Receive Date: 20080725
  Receipt Date: 20080714
  Transmission Date: 20090109
  Serious: Yes (Hospitalization)
  Sender: FDA-Public Use
  Company Number: SE-PFIZER INC-2008058410

PATIENT
  Sex: Male

DRUGS (8)
  1. VFEND [Suspect]
     Dosage: DAILY DOSE:400MG
  2. TRAMADOL HCL [Concomitant]
  3. MESALAMINE [Concomitant]
  4. LANSOPRAZOLE [Concomitant]
  5. ENTOCORT EC [Concomitant]
  6. FOLACIN [Concomitant]
  7. CALCICHEW-D3 [Concomitant]
  8. ACETAMINOPHEN W/ CODEINE [Concomitant]

REACTIONS (4)
  - GAMMA-GLUTAMYLTRANSFERASE [None]
  - NIGHTMARE [None]
  - VISUAL ACUITY REDUCED [None]
  - VOMITING [None]
